FAERS Safety Report 11920365 (Version 3)
Quarter: 2016Q2

REPORT INFORMATION
  Report Type: Spontaneous
  Country: US (occurrence: US)
  Receive Date: 20160115
  Receipt Date: 20160427
  Transmission Date: 20160815
  Serious: Yes (Hospitalization)
  Sender: FDA-Public Use
  Company Number: US-ROCHE-1692101

PATIENT
  Age: 50 Year
  Sex: Female

DRUGS (15)
  1. HERCEPTIN [Suspect]
     Active Substance: TRASTUZUMAB
     Indication: BREAST CANCER METASTATIC
     Route: 065
  2. XELODA [Suspect]
     Active Substance: CAPECITABINE
     Route: 065
     Dates: start: 20150520
  3. FEMARA [Concomitant]
     Active Substance: LETROZOLE
  4. TAMOXIFEN [Concomitant]
     Active Substance: TAMOXIFEN
  5. KADCYLA [Suspect]
     Active Substance: ADO-TRASTUZUMAB EMTANSINE
     Indication: HER-2 POSITIVE BREAST CANCER
  6. KADCYLA [Suspect]
     Active Substance: ADO-TRASTUZUMAB EMTANSINE
     Indication: BREAST CANCER METASTATIC
     Dosage: LAST DOSE ON 06/APR/2016
     Route: 065
     Dates: start: 20151221
  7. XELODA [Suspect]
     Active Substance: CAPECITABINE
     Indication: BREAST CANCER METASTATIC
     Route: 065
     Dates: start: 201403, end: 20150105
  8. TYKERB [Concomitant]
     Active Substance: LAPATINIB DITOSYLATE
     Dosage: 750/DAY
     Route: 065
  9. LAPATINIB [Concomitant]
     Active Substance: LAPATINIB
  10. GEMZAR [Concomitant]
     Active Substance: GEMCITABINE HYDROCHLORIDE
     Route: 065
     Dates: start: 20150202, end: 20150520
  11. TAXOTERE [Concomitant]
     Active Substance: DOCETAXEL
  12. KADCYLA [Suspect]
     Active Substance: ADO-TRASTUZUMAB EMTANSINE
     Indication: CEREBRAL DISORDER
  13. ZOMETA [Concomitant]
     Active Substance: ZOLEDRONIC ACID
  14. KEPPRA [Concomitant]
     Active Substance: LEVETIRACETAM
     Route: 065
     Dates: start: 20160114
  15. TAXOL [Concomitant]
     Active Substance: PACLITAXEL

REACTIONS (16)
  - Pain [Not Recovered/Not Resolved]
  - Ovarian enlargement [Unknown]
  - Dizziness [Unknown]
  - Carcinoembryonic antigen increased [Unknown]
  - Transient ischaemic attack [Unknown]
  - Petit mal epilepsy [Unknown]
  - Speech disorder [Recovered/Resolved]
  - Metastases to central nervous system [Unknown]
  - Metastases to bone [Not Recovered/Not Resolved]
  - Ejection fraction decreased [Unknown]
  - Headache [Recovered/Resolved]
  - Pain in extremity [Unknown]
  - Decreased appetite [Unknown]
  - Paronychia [Unknown]
  - Carbohydrate antigen 27.29 increased [Unknown]
  - Hepatic steatosis [Unknown]

NARRATIVE: CASE EVENT DATE: 20151223
